FAERS Safety Report 4801273-3 (Version None)
Quarter: 2005Q4

REPORT INFORMATION
  Report Type: 
  Country: None (occurrence: None)
  Receive Date: 20051017
  Receipt Date: 20051007
  Transmission Date: 20060501
  Serious: Yes (Hospitalization)
  Sender: FDA-Public Use
  Company Number: CH-MERCK-0510CHE00006

PATIENT
  Age: 1 Day
  Sex: Female
  Weight: 3 kg

DRUGS (1)
  1. NOROXIN [Suspect]
     Route: 065

REACTIONS (1)
  - CARDIAC MURMUR [None]
